FAERS Safety Report 15270368 (Version 1)
Quarter: 2018Q3

REPORT INFORMATION
  Report Type: Spontaneous
  Country: US (occurrence: US)
  Receive Date: 20180813
  Receipt Date: 20180813
  Transmission Date: 20181010
  Serious: No
  Sender: FDA-Public Use
  Company Number: US-GALDERMA-US18027216

PATIENT
  Age: 37 Year
  Sex: Female

DRUGS (2)
  1. PROACTIV MD ADAPALENE ACNE TREATMENT [Suspect]
     Active Substance: ADAPALENE
     Indication: ACNE
     Dosage: 0.1%
     Route: 061
     Dates: start: 20180328, end: 20180412
  2. PROACTIV MD DEEP CLEANSING FACE WASH [Concomitant]
     Active Substance: COSMETICS
     Indication: ACNE
     Dosage: 0
     Route: 061
     Dates: start: 20180328, end: 20180412

REACTIONS (5)
  - Pain of skin [Recovering/Resolving]
  - Erythema [Recovering/Resolving]
  - Dry skin [Recovering/Resolving]
  - Inappropriate schedule of drug administration [Recovering/Resolving]
  - Overdose [Recovering/Resolving]

NARRATIVE: CASE EVENT DATE: 201804
